FAERS Safety Report 5147871-1 (Version None)
Quarter: 2006Q4

REPORT INFORMATION
  Report Type: 
  Country: None (occurrence: None)
  Receive Date: 20061110
  Receipt Date: 20061030
  Transmission Date: 20070319
  Serious: Yes (Other)
  Sender: FDA-Public Use
  Company Number: PHBS2006JP16969

PATIENT
  Age: 80 Year
  Sex: Male

DRUGS (4)
  1. DIOVAN [Suspect]
     Route: 048
  2. LANSOPRAZOLE [Concomitant]
     Route: 048
  3. TEGRETOL [Concomitant]
     Route: 048
  4. PLETAL [Concomitant]
     Route: 048

REACTIONS (1)
  - INTERSTITIAL LUNG DISEASE [None]
